FAERS Safety Report 4531685-7 (Version None)
Quarter: 2004Q4

REPORT INFORMATION
  Report Type: 
  Country: None (occurrence: None)
  Receive Date: 20041216
  Receipt Date: 20041216
  Transmission Date: 20050328
  Serious: Yes (Other)
  Sender: FDA-Public Use
  Company Number: None

PATIENT
  Sex: Female
  Weight: 62.1428 kg

DRUGS (1)
  1. ZESTRIL [Suspect]
     Indication: CAROTID ARTERY ANEURYSM
     Dosage: 10MG PO BID
     Route: 013
     Dates: start: 20030201, end: 20030301

REACTIONS (5)
  - CAROTID ARTERY ANEURYSM [None]
  - CONSTIPATION [None]
  - HEADACHE [None]
  - SPEECH DISORDER [None]
  - TREATMENT NONCOMPLIANCE [None]
